FAERS Safety Report 8292349-X (Version None)
Quarter: 2012Q2

REPORT INFORMATION
  Report Type: 
  Country: None (occurrence: None)
  Receive Date: 20120417
  Receipt Date: 20110705
  Transmission Date: 20120825
  Serious: No
  Sender: FDA-Public Use
  Company Number: US-BAUSCH-2011BL004365

PATIENT
  Age: 68 Year
  Sex: Male

DRUGS (1)
  1. FLUNISOLIDE [Suspect]
     Indication: NASAL CONGESTION
     Route: 045
     Dates: start: 20100101, end: 20110630

REACTIONS (2)
  - RHINALGIA [None]
  - DRUG INEFFECTIVE [None]
